FAERS Safety Report 8405090 (Version 3)
Quarter: 2014Q1

REPORT INFORMATION
  Report Type: Spontaneous
  Country: US (occurrence: US)
  Receive Date: 20120214
  Receipt Date: 20140107
  Transmission Date: 20141002
  Serious: Yes (Death, Hospitalization)
  Sender: FDA-Public Use
  Company Number: US-GLAXOSMITHKLINE-A0913526A

PATIENT
  Age: 56 Year
  Sex: Male

DRUGS (7)
  1. AVANDAMET [Suspect]
     Indication: DIABETES MELLITUS
     Dosage: 1TAB TWICE PER DAY
     Route: 048
     Dates: start: 200809, end: 201009
  2. AVANDARYL [Suspect]
     Indication: TYPE 2 DIABETES MELLITUS
     Route: 048
     Dates: end: 200706
  3. BENICAR [Concomitant]
  4. HCTZ [Concomitant]
  5. COLCHICINE [Concomitant]
  6. INDOMETHACIN [Concomitant]
  7. CELEBREX [Concomitant]

REACTIONS (2)
  - Myocardial infarction [Fatal]
  - Cardiovascular disorder [Unknown]
